FAERS Safety Report 8972417 (Version 1)
Quarter: 2012Q4

REPORT INFORMATION
  Report Type: Spontaneous
  Country: US (occurrence: None)
  Receive Date: 20121217
  Receipt Date: 20121217
  Transmission Date: 20130627
  Serious: Yes (Hospitalization, Other)
  Sender: FDA-Public Use
  Company Number: None

PATIENT
  Age: 68 Year
  Sex: Male
  Weight: 104.33 kg

DRUGS (1)
  1. GLIPIZIDE [Suspect]

REACTIONS (7)
  - Dizziness [None]
  - Heart rate increased [None]
  - Headache [None]
  - Abdominal distension [None]
  - Weight increased [None]
  - Constipation [None]
  - Diplopia [None]
